FAERS Safety Report 20526616 (Version 1)
Quarter: 2022Q1

REPORT INFORMATION
  Report Type: Report from Study
  Country: BR (occurrence: BR)
  Receive Date: 20220228
  Receipt Date: 20220228
  Transmission Date: 20220423
  Serious: Yes (Death, Hospitalization, Other)
  Sender: FDA-Public Use
  Company Number: BR-TAKEDA-2022TUS012580

PATIENT

DRUGS (1)
  1. MOBOCERTINIB [Suspect]
     Active Substance: MOBOCERTINIB
     Indication: Product used for unknown indication
     Dosage: UNK
     Route: 065
     Dates: end: 20211207

REACTIONS (5)
  - Lung cancer metastatic [Fatal]
  - Metastases to bone [Fatal]
  - Metastases to central nervous system [Fatal]
  - Seizure [Unknown]
  - Adverse event [Unknown]

NARRATIVE: CASE EVENT DATE: 20211207
